FAERS Safety Report 9258643 (Version 1)
Quarter: 2013Q2

REPORT INFORMATION
  Report Type: Spontaneous
  Country: US (occurrence: None)
  Receive Date: 20130425
  Receipt Date: 20130425
  Transmission Date: 20140414
  Serious: Yes (Other)
  Sender: FDA-Public Use
  Company Number: None

PATIENT
  Age: 43 Year
  Sex: Male

DRUGS (1)
  1. ETOMIDATE [Suspect]
     Indication: SEDATION
     Dates: start: 20130424, end: 20130424

REACTIONS (4)
  - Tachycardia [None]
  - Rash [None]
  - Bronchospasm [None]
  - Hypertension [None]
